FAERS Safety Report 16631182 (Version 2)
Quarter: 2019Q3

REPORT INFORMATION
  Report Type: Spontaneous
  Country: US (occurrence: US)
  Receive Date: 20190725
  Receipt Date: 20190725
  Transmission Date: 20191004
  Serious: No
  Sender: FDA-Public Use
  Company Number: US-ABBVIE-18P-163-2429754-00

PATIENT
  Age: 56 Year
  Sex: Female
  Weight: 80.81 kg

DRUGS (13)
  1. SYNTHROID [Suspect]
     Active Substance: LEVOTHYROXINE SODIUM
     Indication: HYPOTHYROIDISM
     Dosage: DOSE INCREASE
     Route: 048
     Dates: start: 201807, end: 201808
  2. SUBLINGUAL VITAMIN B12 [Concomitant]
     Indication: VITAMIN SUPPLEMENTATION
  3. SYNTHROID [Suspect]
     Active Substance: LEVOTHYROXINE SODIUM
     Route: 048
     Dates: start: 201808
  4. ALIVE WOMANS VITAMINS [Concomitant]
     Indication: VITAMIN SUPPLEMENTATION
  5. MACROBID [Interacting]
     Active Substance: NITROFURANTOIN\NITROFURANTOIN MONOHYDRATE
     Indication: PRODUCT USED FOR UNKNOWN INDICATION
  6. CLINICIAN^S PREFERENCE OILS [Concomitant]
     Indication: VITAMIN SUPPLEMENTATION
  7. POTASSIUM [Concomitant]
     Active Substance: POTASSIUM
     Indication: ELECTROLYTE SUBSTITUTION THERAPY
  8. NORDIC VITAMIN D3 [Concomitant]
     Indication: VITAMIN SUPPLEMENTATION
  9. MAGNESIUM [Concomitant]
     Active Substance: MAGNESIUM
     Indication: MINERAL SUPPLEMENTATION
  10. SYNTHROID [Suspect]
     Active Substance: LEVOTHYROXINE SODIUM
     Indication: HYPOTHYROIDISM
     Dosage: ORIGINAL DOSE
     Route: 048
     Dates: start: 2013, end: 2018
  11. OMEGA 3 [Concomitant]
     Active Substance: OMEGA-3 FATTY ACIDS
     Indication: VITAMIN SUPPLEMENTATION
  12. RANITIDINE. [Concomitant]
     Active Substance: RANITIDINE
     Indication: HYPERCHLORHYDRIA
  13. TERRY NATURALLY IODINE CO FACTORS [Concomitant]
     Indication: HORMONE REPLACEMENT THERAPY

REACTIONS (3)
  - Nervousness [Recovered/Resolved]
  - Insomnia [Recovered/Resolved]
  - Palpitations [Recovered/Resolved]

NARRATIVE: CASE EVENT DATE: 201807
